FAERS Safety Report 22958691 (Version 2)
Quarter: 2023Q4

REPORT INFORMATION
  Report Type: Report from Study
  Country: US (occurrence: US)
  Receive Date: 20230919
  Receipt Date: 20231011
  Transmission Date: 20240110
  Serious: Yes (Hospitalization)
  Sender: FDA-Public Use
  Company Number: US-TAIHO-2023-001349

PATIENT
  Age: 65 Year
  Sex: Male

DRUGS (1)
  1. LONSURF [Suspect]
     Active Substance: TIPIRACIL HYDROCHLORIDE\TRIFLURIDINE
     Indication: Colon cancer
     Dosage: CYCLE 1
     Route: 048
     Dates: start: 20230207, end: 20230407

REACTIONS (7)
  - Pyrexia [Unknown]
  - Disease progression [Not Recovered/Not Resolved]
  - Haemoglobin decreased [Recovering/Resolving]
  - Fatigue [Unknown]
  - Rhinorrhoea [Unknown]
  - Diarrhoea [Unknown]
  - Asthenia [Unknown]
